FAERS Safety Report 8381492-2 (Version None)
Quarter: 2012Q2

REPORT INFORMATION
  Report Type: 
  Country: None (occurrence: None)
  Receive Date: 20120523
  Receipt Date: 20120507
  Transmission Date: 20120825
  Serious: Yes (Life-Threatening, Hospitalization, Other)
  Sender: FDA-Public Use
  Company Number: FR-BAXTER-2012BAX001907

PATIENT
  Sex: Male

DRUGS (16)
  1. CALCIFEDIOL [Concomitant]
     Dosage: 4 DROPS
     Route: 065
  2. SODIUM POLYSTYRENE SULFONATE [Concomitant]
     Dosage: 1 MEASURING SPOON/DAY
     Route: 065
  3. EXTRANEAL [Suspect]
     Indication: PERITONEAL DIALYSIS
     Route: 033
     Dates: start: 20120307, end: 20120309
  4. OFLOXACIN [Suspect]
     Indication: INFECTION PROPHYLAXIS
     Route: 065
     Dates: start: 20120214
  5. FUROSEMIDE [Concomitant]
     Indication: FLUID OVERLOAD
     Route: 065
  6. ESOMEPRAZOLE MAGNESIUM [Concomitant]
     Route: 065
  7. FLUINDIONE [Concomitant]
     Route: 048
  8. ZOPICLONE [Concomitant]
     Route: 065
  9. URAPIDIL [Suspect]
     Indication: HYPERTENSION
     Route: 065
     Dates: start: 20120217
  10. LASIX [Concomitant]
  11. PREDNISONE [Concomitant]
     Route: 048
  12. CALCIUM CARBONATE [Concomitant]
     Dosage: 1 TABLET
     Route: 065
  13. AMLODIPINE BESYLATE [Concomitant]
     Route: 048
  14. PHYSIONEAL 40 GLUCOSE 1,36%, SOLUTION POUR DIALYSE PERITONEALE [Concomitant]
     Indication: PERITONEAL DIALYSIS
     Route: 033
     Dates: start: 20120307
  15. ACEBUTOLOL [Concomitant]
     Route: 048
  16. RAMIPRIL [Concomitant]
     Dosage: 1 UNIT
     Route: 065

REACTIONS (15)
  - ESCHERICHIA SEPSIS [None]
  - SEPSIS [None]
  - DELIRIUM [None]
  - POLYP [None]
  - DERMATITIS CONTACT [None]
  - ENTEROBACTER INFECTION [None]
  - AGITATION [None]
  - PSEUDOMONAS INFECTION [None]
  - TOXIC EPIDERMAL NECROLYSIS [None]
  - KLEBSIELLA INFECTION [None]
  - FLUID OVERLOAD [None]
  - PYREXIA [None]
  - SUBCUTANEOUS ABSCESS [None]
  - PNEUMONIA [None]
  - CANDIDIASIS [None]
